FAERS Safety Report 21056503 (Version 1)
Quarter: 2022Q3

REPORT INFORMATION
  Report Type: Report from Study
  Country: EG (occurrence: EG)
  Receive Date: 20220708
  Receipt Date: 20220708
  Transmission Date: 20221026
  Serious: Yes (Other)
  Sender: FDA-Public Use
  Company Number: EG-NOVARTISPH-NVSC2022EG154310

PATIENT
  Age: 40 Year
  Sex: Male

DRUGS (5)
  1. TASIGNA [Suspect]
     Active Substance: NILOTINIB
     Indication: Chronic myeloid leukaemia
     Dosage: 600 MG QD (600 MG/DAY (4 CAPS/DAY)
     Route: 048
     Dates: start: 20220222, end: 202205
  2. TASIGNA [Suspect]
     Active Substance: NILOTINIB
     Dosage: 300 MG, QD (300 MG/DAY (2 CAPS/DAY)
     Route: 048
     Dates: start: 202205, end: 202206
  3. TASIGNA [Suspect]
     Active Substance: NILOTINIB
     Dosage: 450 MG, QD (450 MG/DAY (3 CAPS/DAY)
     Route: 048
     Dates: start: 202206, end: 20220702
  4. TASIGNA [Suspect]
     Active Substance: NILOTINIB
     Dosage: 300 MG, QD (300 MG/DAY (2 CAPS/DAY)
     Route: 048
     Dates: start: 20220702
  5. ALLOPURINOL [Concomitant]
     Active Substance: ALLOPURINOL
     Indication: Gout
     Dosage: 300 MG, QD (1 TAB/DAY)
     Route: 048
     Dates: start: 20220101

REACTIONS (3)
  - Platelet count decreased [Not Recovered/Not Resolved]
  - Underdose [Recovered/Resolved]
  - Off label use [Not Recovered/Not Resolved]

NARRATIVE: CASE EVENT DATE: 20220305
